FAERS Safety Report 5836734-1 (Version None)
Quarter: 2008Q3

REPORT INFORMATION
  Report Type: 
  Country: None (occurrence: None)
  Receive Date: 20080806
  Receipt Date: 20080806
  Transmission Date: 20090109
  Serious: Yes (Other)
  Sender: FDA-Public Use
  Company Number: None

PATIENT
  Sex: Female
  Weight: 52.6173 kg

DRUGS (1)
  1. CHANTIX [Suspect]
     Indication: SUICIDAL IDEATION
     Dosage: TAPER DOSE 5MG TO 10MG FIRST QD THEN BID PO
     Route: 048
     Dates: start: 20080108, end: 20080208

REACTIONS (1)
  - SUICIDAL IDEATION [None]
